FAERS Safety Report 7540365-5 (Version None)
Quarter: 2011Q2

REPORT INFORMATION
  Report Type: 
  Country: None (occurrence: None)
  Receive Date: 20110603
  Receipt Date: 20110518
  Transmission Date: 20111010
  Serious: Yes (Hospitalization)
  Sender: FDA-Public Use
  Company Number: 2011MA006058

PATIENT
  Age: 16 Year
  Sex: Female

DRUGS (4)
  1. BUSULFAN [Concomitant]
  2. HORSE ANTITHYMOCYTE  GLOBULIN [Concomitant]
  3. PHENYTOIN [Suspect]
     Indication: PROPHYLAXIS
  4. CYCLOPHOSPHAMIDE [Concomitant]

REACTIONS (9)
  - DEAFNESS NEUROSENSORY [None]
  - SERUM FERRITIN INCREASED [None]
  - POSTERIOR REVERSIBLE ENCEPHALOPATHY SYNDROME [None]
  - CYTOMEGALOVIRUS VIRAEMIA [None]
  - TOXICITY TO VARIOUS AGENTS [None]
  - COMPLICATIONS OF TRANSPLANT SURGERY [None]
  - OVARIAN FAILURE [None]
  - ATAXIA [None]
  - CONVULSION [None]
